FAERS Safety Report 22147940 (Version 2)
Quarter: 2023Q2

REPORT INFORMATION
  Report Type: Spontaneous
  Country: US (occurrence: US)
  Receive Date: 20230328
  Receipt Date: 20230414
  Transmission Date: 20230722
  Serious: Yes (Other)
  Sender: FDA-Public Use
  Company Number: US-APIL-2309799US

PATIENT
  Sex: Female

DRUGS (1)
  1. LILETTA [Suspect]
     Active Substance: LEVONORGESTREL
     Indication: Product used for unknown indication
     Dosage: 52 MG, SINGLE
     Route: 015
     Dates: start: 20220201, end: 20220509

REACTIONS (3)
  - Ectopic pregnancy [Unknown]
  - Drug ineffective [Unknown]
  - Pregnancy [Unknown]
